FAERS Safety Report 7749070-3 (Version None)
Quarter: 2011Q3

REPORT INFORMATION
  Report Type: 
  Country: None (occurrence: None)
  Receive Date: 20110825
  Receipt Date: 20110525
  Transmission Date: 20111222
  Serious: No
  Sender: FDA-Public Use
  Company Number: 327840

PATIENT
  Age: 55 Year
  Sex: Male

DRUGS (4)
  1. METFORMIN HCL [Concomitant]
  2. VICTOZA [Suspect]
     Indication: TYPE 2 DIABETES MELLITUS
     Dosage: 1.8 MG, QD, SUBCUTANEOUS
     Route: 058
  3. HUMALOG [Concomitant]
  4. LEVEMIR [Concomitant]

REACTIONS (1)
  - DRUG INEFFECTIVE [None]
